FAERS Safety Report 19392561 (Version 2)
Quarter: 2022Q2

REPORT INFORMATION
  Report Type: Report from Study
  Country: JP (occurrence: JP)
  Receive Date: 20210609
  Receipt Date: 20220428
  Transmission Date: 20220721
  Serious: Yes (Other)
  Sender: FDA-Public Use
  Company Number: JP-CELLTRION INC.-2020JP024600

PATIENT

DRUGS (8)
  1. INFLIXIMAB-DYYB [Suspect]
     Active Substance: INFLIXIMAB-DYYB
     Indication: Crohn^s disease
     Dosage: 930 MG (WEIGHT 93.4KG)
     Route: 041
     Dates: start: 20181204, end: 20181204
  2. INFLIXIMAB-DYYB [Suspect]
     Active Substance: INFLIXIMAB-DYYB
     Dosage: 900 MG (WEIGHT: 90.1KG)
     Route: 041
     Dates: start: 20190129, end: 20190129
  3. INFLIXIMAB-DYYB [Suspect]
     Active Substance: INFLIXIMAB-DYYB
     Dosage: 920 MG (WEIGHT: 91.2KG)
     Route: 041
     Dates: start: 20190326, end: 20190326
  4. INFLIXIMAB-DYYB [Suspect]
     Active Substance: INFLIXIMAB-DYYB
     Dosage: 910 MG (WEIGHT: 90.7 KG)
     Route: 041
     Dates: start: 20190521, end: 20190521
  5. INFLIXIMAB-DYYB [Suspect]
     Active Substance: INFLIXIMAB-DYYB
     Dosage: 920 MG (WEIGHT: 91.8 KG)
     Route: 041
     Dates: start: 20191106, end: 20191106
  6. INFLIXIMAB-DYYB [Suspect]
     Active Substance: INFLIXIMAB-DYYB
     Dosage: 930 MG (WEIGHT: 93KG)
     Route: 041
     Dates: start: 20201217, end: 20201217
  7. INFLIXIMAB-DYYB [Suspect]
     Active Substance: INFLIXIMAB-DYYB
     Dosage: 930 MG (WEIGHT: 94 KG)
     Route: 041
     Dates: start: 20211228, end: 20211228
  8. MESALAMINE [Concomitant]
     Active Substance: MESALAMINE
     Dosage: 3000 MG, DAILY
     Route: 048

REACTIONS (7)
  - Nephrolithiasis [Recovered/Resolved]
  - Hydronephrosis [Recovered/Resolved]
  - Haematuria [Recovered/Resolved]
  - Calculus urinary [Not Recovered/Not Resolved]
  - Hypercholesterolaemia [Not Recovered/Not Resolved]
  - Overdose [Unknown]
  - Off label use [Unknown]

NARRATIVE: CASE EVENT DATE: 20200425
